FAERS Safety Report 9126551 (Version 2)
Quarter: 2013Q2

REPORT INFORMATION
  Report Type: Report from Study
  Country: GB (occurrence: GB)
  Receive Date: 20130121
  Receipt Date: 20130617
  Transmission Date: 20140414
  Serious: Yes (Hospitalization, Other)
  Sender: FDA-Public Use
  Company Number: GB-BAXTER-2013BAX001894

PATIENT
  Age: 16 Year
  Sex: Female
  Weight: 38.8 kg

DRUGS (76)
  1. IFOSFAMIDE 40 MG/ML SOLUTION FOR INFUSION [Suspect]
     Indication: NEOPLASM MALIGNANT
     Route: 042
     Dates: start: 20121017, end: 20121019
  2. IFOSFAMIDE 40 MG/ML SOLUTION FOR INFUSION [Suspect]
     Indication: CHEMOTHERAPY
     Route: 042
     Dates: start: 20120921, end: 20120923
  3. IFOSFAMIDE 40 MG/ML SOLUTION FOR INFUSION [Suspect]
     Route: 042
     Dates: start: 20121107
  4. IFOSFAMIDE 40 MG/ML SOLUTION FOR INFUSION [Suspect]
     Route: 065
     Dates: start: 20121109
  5. IFOSFAMIDE 40 MG/ML SOLUTION FOR INFUSION [Suspect]
     Route: 065
     Dates: start: 20121128
  6. IFOSFAMIDE 40 MG/ML SOLUTION FOR INFUSION [Suspect]
     Route: 065
     Dates: start: 20121130
  7. APREPITANT [Suspect]
     Indication: PROPHYLAXIS OF NAUSEA AND VOMITING
     Route: 048
     Dates: start: 20121107, end: 20121107
  8. APREPITANT [Suspect]
     Route: 048
     Dates: start: 20121108, end: 20121108
  9. APREPITANT [Suspect]
     Route: 048
     Dates: start: 20121109, end: 20121109
  10. APREPITANT [Suspect]
     Route: 048
     Dates: start: 20121017, end: 20121017
  11. APREPITANT [Suspect]
     Route: 048
     Dates: start: 20121018, end: 20121018
  12. APREPITANT [Suspect]
     Route: 048
     Dates: start: 20121019, end: 20121019
  13. APREPITANT [Suspect]
     Route: 048
     Dates: start: 20120921, end: 20120921
  14. APREPITANT [Suspect]
     Route: 048
     Dates: start: 20120922, end: 20120922
  15. APREPITANT [Suspect]
     Route: 048
     Dates: start: 20120923, end: 20120923
  16. APREPITANT [Suspect]
     Route: 048
     Dates: start: 20121128, end: 20121128
  17. APREPITANT [Suspect]
     Route: 048
     Dates: start: 20121129, end: 20121129
  18. APREPITANT [Suspect]
     Route: 048
     Dates: start: 20121219
  19. APREPITANT [Suspect]
     Route: 065
     Dates: start: 20121220
  20. APREPITANT [Suspect]
     Route: 065
     Dates: start: 20121221
  21. APREPITANT [Suspect]
     Route: 065
     Dates: start: 20121222
  22. DOXORUBICIN [Suspect]
     Indication: CHEMOTHERAPY
     Route: 042
     Dates: start: 20121017, end: 20121018
  23. DOXORUBICIN [Suspect]
     Route: 042
     Dates: start: 20120922, end: 20120923
  24. DOXORUBICIN [Suspect]
     Route: 042
     Dates: start: 20121108, end: 20121108
  25. DOXORUBICIN [Suspect]
     Route: 042
     Dates: start: 20121128
  26. DOXORUBICIN [Suspect]
     Route: 065
     Dates: start: 20121129
  27. ONDANSETRON [Suspect]
     Indication: PROPHYLAXIS OF NAUSEA AND VOMITING
     Route: 042
     Dates: start: 20121007, end: 20121007
  28. ONDANSETRON [Suspect]
     Route: 065
     Dates: start: 20121017, end: 20121017
  29. ONDANSETRON [Suspect]
     Route: 065
     Dates: start: 20121018, end: 20121018
  30. ONDANSETRON [Suspect]
     Route: 065
     Dates: start: 20121019, end: 20121019
  31. ONDANSETRON [Suspect]
     Route: 042
     Dates: start: 20120921, end: 20120924
  32. ONDANSETRON [Suspect]
     Route: 042
     Dates: start: 20120924, end: 20120924
  33. ONDANSETRON [Suspect]
     Route: 065
     Dates: start: 20120925, end: 20120925
  34. ONDANSETRON [Suspect]
     Route: 065
     Dates: start: 20120926, end: 20120927
  35. ONDANSETRON [Suspect]
     Route: 065
     Dates: start: 20120927, end: 20120927
  36. ONDANSETRON [Suspect]
     Route: 042
     Dates: start: 20121219
  37. ONDANSETRON [Suspect]
     Route: 042
     Dates: start: 20121220
  38. ONDANSETRON [Suspect]
     Route: 065
     Dates: start: 20121221
  39. ONDANSETRON [Suspect]
     Route: 065
     Dates: start: 20121222
  40. DEXAMETHASONE [Concomitant]
     Indication: PROPHYLAXIS OF NAUSEA AND VOMITING
     Route: 042
     Dates: start: 20120921, end: 20120921
  41. DEXAMETHASONE [Concomitant]
     Route: 042
     Dates: start: 20120922, end: 20120922
  42. DEXAMETHASONE [Concomitant]
     Route: 042
     Dates: start: 20120923, end: 20120923
  43. DEXAMETHASONE [Concomitant]
     Route: 042
     Dates: start: 20120924, end: 20120924
  44. BUSCOPAN [Concomitant]
     Indication: PRODUCT USED FOR UNKNOWN INDICATION
     Route: 065
     Dates: start: 20121005, end: 20121008
  45. CALCIUM CARBONATE [Concomitant]
     Indication: PRODUCT USED FOR UNKNOWN INDICATION
     Route: 065
     Dates: start: 20121005, end: 20121009
  46. CIPROFLOXACIN [Concomitant]
     Indication: MUCOSAL INFLAMMATION
     Route: 048
     Dates: start: 20121030, end: 201211
  47. CIPROFLOXACIN [Concomitant]
     Indication: CELLULITIS
  48. CO-AMOXICLAV [Concomitant]
     Indication: INFECTION
     Route: 048
     Dates: start: 20121030, end: 201211
  49. CO-AMOXICLAV [Concomitant]
     Indication: MUCOSAL INFLAMMATION
  50. CODEINE [Concomitant]
     Indication: ANALGESIC THERAPY
     Route: 048
     Dates: start: 20121005, end: 20121005
  51. CODEINE PHOSPHATE [Concomitant]
     Indication: ANALGESIC THERAPY
     Route: 048
     Dates: start: 20121005, end: 20121005
  52. CODEINE PHOSPHATE [Concomitant]
     Route: 048
     Dates: start: 20120830
  53. CYCLIZINE [Concomitant]
     Indication: ANTIEMETIC SUPPORTIVE CARE
     Route: 048
     Dates: start: 20121017, end: 20121017
  54. CYCLIZINE [Concomitant]
     Indication: MUCOSAL INFLAMMATION
     Route: 048
     Dates: start: 20120923, end: 20120923
  55. CYCLIZINE [Concomitant]
     Indication: NAUSEA
  56. FENTANYL [Concomitant]
     Indication: PAIN
     Route: 065
     Dates: start: 20121030
  57. HEPARIN [Concomitant]
     Indication: ANTICOAGULANT THERAPY
     Route: 042
     Dates: start: 20120914
  58. HYPROMELLOSE [Concomitant]
     Indication: DRY EYE
     Route: 047
     Dates: start: 20121019
  59. MACROGOL [Concomitant]
     Indication: CONSTIPATION
     Route: 048
     Dates: start: 20120830, end: 201209
  60. MESNA [Concomitant]
     Indication: INFECTION PROPHYLAXIS
     Route: 042
     Dates: start: 20121017, end: 20121019
  61. MESNA [Concomitant]
     Route: 065
     Dates: start: 20120921, end: 20120924
  62. MESNA [Concomitant]
     Route: 042
  63. NORETHINDRONE [Concomitant]
     Indication: MENSTRUAL DISORDER
     Route: 048
     Dates: start: 20120903
  64. OXYCODONE [Concomitant]
     Indication: ABDOMINAL PAIN
     Route: 042
     Dates: start: 20121030, end: 20121030
  65. OXYCODONE [Concomitant]
     Indication: MUCOSAL INFLAMMATION
     Dosage: 5-10 MG
     Route: 065
     Dates: start: 20121101
  66. OXYCODONE [Concomitant]
     Indication: ANAL INFLAMMATION
     Route: 048
     Dates: start: 20121122, end: 20121201
  67. OXYCODONE [Concomitant]
     Indication: PAIN
     Route: 065
  68. PARACETAMOL [Concomitant]
     Indication: ANALGESIC THERAPY
     Route: 048
     Dates: start: 20121005, end: 20121006
  69. PARACETAMOL [Concomitant]
     Indication: HEADACHE
  70. RED BLOOD CELLS [Concomitant]
     Indication: HAEMOGLOBIN DECREASED
     Route: 042
     Dates: start: 20120924, end: 20120924
  71. TEICOPLANIN [Concomitant]
     Indication: DEVICE RELATED INFECTION
     Route: 042
     Dates: start: 20120915, end: 20120920
  72. DOCUSATE SODIUM [Concomitant]
     Indication: PROCTALGIA
     Route: 065
  73. GRANULOCYTE COLONY STIMULATING FACTOR [Concomitant]
     Indication: PRODUCT USED FOR UNKNOWN INDICATION
     Route: 065
  74. BLOOD, WHOLE [Concomitant]
     Indication: FULL BLOOD COUNT ABNORMAL
     Route: 065
  75. DEXTROSE [Concomitant]
     Indication: FLUID IMBALANCE
     Route: 065
  76. SODIUM CHLORIDE [Concomitant]
     Indication: FLUID IMBALANCE
     Route: 065

REACTIONS (12)
  - Medical device complication [Unknown]
  - Constipation [Recovered/Resolved]
  - Haemoglobin decreased [Not Recovered/Not Resolved]
  - Diarrhoea [Recovered/Resolved]
  - Febrile neutropenia [Recovered/Resolved]
  - Periorbital cellulitis [Recovered/Resolved]
  - Vena cava thrombosis [Not Recovered/Not Resolved]
  - Medical device complication [Recovered/Resolved]
  - Abdominal pain [Recovered/Resolved]
  - Mucosal inflammation [Recovered/Resolved]
  - Febrile neutropenia [Recovered/Resolved]
  - Febrile neutropenia [Recovered/Resolved]
